FAERS Safety Report 15039767 (Version 1)
Quarter: 2018Q2

REPORT INFORMATION
  Report Type: Spontaneous
  Country: US (occurrence: US)
  Receive Date: 20180530
  Receipt Date: 20180530
  Transmission Date: 20180711
  Serious: Yes (Hospitalization)
  Sender: FDA-Public Use
  Company Number: None

PATIENT
  Age: 72 Year
  Sex: Male

DRUGS (1)
  1. REVLIMID [Suspect]
     Active Substance: LENALIDOMIDE
     Indication: NON-HODGKIN^S LYMPHOMA
     Route: 048
     Dates: start: 20180206, end: 20180322

REACTIONS (7)
  - Abdominal pain [None]
  - Constipation [None]
  - Vomiting [None]
  - Nausea [None]
  - Thrombocytopenia [None]
  - Disease progression [None]
  - Deep vein thrombosis [None]

NARRATIVE: CASE EVENT DATE: 20180223
